FAERS Safety Report 25314483 (Version 9)
Quarter: 2025Q3

REPORT INFORMATION
  Report Type: Spontaneous
  Country: US (occurrence: US)
  Receive Date: 20250514
  Receipt Date: 20250719
  Transmission Date: 20251020
  Serious: Yes (Hospitalization, Disabling, Other)
  Sender: AMGEN
  Company Number: US-AMGEN-USASP2025091905

PATIENT
  Sex: Female

DRUGS (21)
  1. TEPEZZA [Suspect]
     Active Substance: TEPROTUMUMAB-TRBW
     Indication: Graves^ disease
     Route: 040
     Dates: start: 20220118
  2. TEPEZZA [Suspect]
     Active Substance: TEPROTUMUMAB-TRBW
     Indication: Endocrine ophthalmopathy
     Dosage: 1500 MILLIGRAM, Q3WK
     Route: 040
     Dates: start: 20220519, end: 20220720
  3. TEPEZZA [Suspect]
     Active Substance: TEPROTUMUMAB-TRBW
     Dosage: UNK, Q3WK
     Route: 040
     Dates: start: 20220720
  4. TEPEZZA [Suspect]
     Active Substance: TEPROTUMUMAB-TRBW
     Dosage: UNK, Q3WK
     Route: 040
     Dates: start: 20220816, end: 20220816
  5. HYDROCHLOROTHIAZIDE\LOSARTAN POTASSIUM [Concomitant]
     Active Substance: HYDROCHLOROTHIAZIDE\LOSARTAN POTASSIUM
     Route: 065
  6. LEVOTHYROXINE SODIUM [Concomitant]
     Active Substance: LEVOTHYROXINE SODIUM
     Route: 065
  7. PANTOPRAZOLE SODIUM [Concomitant]
     Active Substance: PANTOPRAZOLE SODIUM
     Route: 065
  8. TYLENOL [Concomitant]
     Active Substance: ACETAMINOPHEN
     Route: 065
  9. VITAMIN D3 [Concomitant]
     Active Substance: CHOLECALCIFEROL
  10. CALCIUM [Concomitant]
     Active Substance: CALCIUM
  11. HYZAAR [Concomitant]
     Active Substance: HYDROCHLOROTHIAZIDE\LOSARTAN POTASSIUM
     Indication: Blood pressure measurement
     Route: 048
     Dates: start: 20220405
  12. SYNTHROID [Concomitant]
     Active Substance: LEVOTHYROXINE SODIUM
     Route: 065
     Dates: start: 20220819
  13. LEVOXYL [Concomitant]
     Active Substance: LEVOTHYROXINE SODIUM
     Route: 065
     Dates: start: 20220819
  14. PROTONIX [Concomitant]
     Active Substance: PANTOPRAZOLE SODIUM
     Dates: start: 20230816
  15. MOBIC [Concomitant]
     Active Substance: MELOXICAM
     Dates: start: 20230816
  16. VOLTAREN [Concomitant]
     Active Substance: DICLOFENAC SODIUM
     Route: 061
     Dates: start: 20230822
  17. REFRESH CELLUVISC [Concomitant]
     Active Substance: CARBOXYMETHYLCELLULOSE SODIUM
     Indication: Developmental glaucoma
     Dosage: UNK UNK, BID
     Dates: start: 20230913, end: 20240912
  18. INFLUENZA VIRUS VACCINE [Concomitant]
     Active Substance: INFLUENZA VIRUS VACCINE
     Route: 065
     Dates: start: 20230901
  19. SODIUM CHLORIDE [Concomitant]
     Active Substance: SODIUM CHLORIDE
     Route: 065
  20. MULTIHANCE [Concomitant]
     Active Substance: GADOBENATE DIMEGLUMINE
     Route: 040
     Dates: start: 20220916, end: 20220916
  21. Artificial tears [Concomitant]
     Dosage: UNK UNK, Q30MIN
     Route: 065

REACTIONS (10)
  - Acute kidney injury [Unknown]
  - Deafness neurosensory [Not Recovered/Not Resolved]
  - Endocrine ophthalmopathy [Unknown]
  - Graves^ disease [Unknown]
  - Pain [Unknown]
  - Emotional distress [Unknown]
  - Anxiety [Unknown]
  - Discomfort [Unknown]
  - Therapy non-responder [Unknown]
  - Product use complaint [Unknown]
